FAERS Safety Report 9841445 (Version 1)
Quarter: 2014Q1

REPORT INFORMATION
  Report Type: Spontaneous
  Country: US (occurrence: US)
  Receive Date: 20140124
  Receipt Date: 20140124
  Transmission Date: 20141002
  Serious: Yes (Other)
  Sender: FDA-Public Use
  Company Number: US-ASTRAZENECA-2014SE04514

PATIENT
  Age: 70 Year
  Sex: Male
  Weight: 90.7 kg

DRUGS (5)
  1. ATACAND [Suspect]
     Indication: HYPERTENSION
     Route: 048
     Dates: start: 20140104
  2. ATACAND [Suspect]
     Indication: HYPERTENSION
     Route: 048
  3. ATACAND [Suspect]
     Indication: HYPERTENSION
     Route: 048
  4. CRESTOR [Suspect]
     Indication: BLOOD CHOLESTEROL INCREASED
     Route: 048
  5. MYCARDIS [Concomitant]
     Indication: HYPERTENSION
     Route: 048

REACTIONS (8)
  - Coronary artery occlusion [Unknown]
  - Hypertension [Unknown]
  - Adverse event [Unknown]
  - Heart rate increased [Unknown]
  - Nervousness [Unknown]
  - Medication error [Unknown]
  - Intentional drug misuse [Unknown]
  - Intentional drug misuse [Not Recovered/Not Resolved]
